FAERS Safety Report 8128861-3 (Version None)
Quarter: 2012Q1

REPORT INFORMATION
  Report Type: 
  Country: None (occurrence: None)
  Receive Date: 20120210
  Receipt Date: 20110505
  Transmission Date: 20120608
  Serious: No
  Sender: FDA-Public Use
  Company Number: US-BRISTOL-MYERS SQUIBB COMPANY-15659618

PATIENT
  Age: 65 Year
  Sex: Female

DRUGS (7)
  1. PROTONIX [Concomitant]
  2. XIFAXAN [Concomitant]
  3. METFORMIN HCL [Concomitant]
  4. ORENCIA [Suspect]
     Indication: RHEUMATOID ARTHRITIS
     Dosage: AFTER 23MAR2011 DOSE
     Route: 042
     Dates: start: 20101227
  5. THEO-24 [Concomitant]
  6. ACCUPRIL [Concomitant]
  7. SINGULAIR [Concomitant]

REACTIONS (3)
  - WEIGHT INCREASED [None]
  - ASCITES [None]
  - BRONCHITIS [None]
